FAERS Safety Report 5641928-4 (Version None)
Quarter: 2008Q1

REPORT INFORMATION
  Report Type: 
  Country: None (occurrence: None)
  Receive Date: 20080227
  Receipt Date: 20080219
  Transmission Date: 20080703
  Serious: Yes (Hospitalization, Other)
  Sender: FDA-Public Use
  Company Number: US-PFIZER INC-2007047897

PATIENT
  Sex: Female

DRUGS (1)
  1. BEXTRA [Suspect]
     Route: 048
     Dates: start: 20030930, end: 20040707

REACTIONS (10)
  - ARRHYTHMIA [None]
  - ARTERIOSCLEROSIS [None]
  - BLOOD CHOLESTEROL INCREASED [None]
  - CEREBROVASCULAR ACCIDENT [None]
  - CONVULSION [None]
  - MYOCARDIAL INFARCTION [None]
  - ORGAN FAILURE [None]
  - PULMONARY EMBOLISM [None]
  - STEVENS-JOHNSON SYNDROME [None]
  - THROMBOSIS [None]
